FAERS Safety Report 20640005 (Version 1)
Quarter: 2022Q1

REPORT INFORMATION
  Report Type: Spontaneous
  Country: US (occurrence: US)
  Receive Date: 20220326
  Receipt Date: 20220326
  Transmission Date: 20220423
  Serious: No
  Sender: FDA-Public Use
  Company Number: US-SANOFI-01021288

PATIENT

DRUGS (1)
  1. DUPIXENT [Suspect]
     Active Substance: DUPILUMAB
     Indication: Chronic obstructive pulmonary disease

REACTIONS (6)
  - Back pain [Unknown]
  - Pain in extremity [Unknown]
  - Cough [Unknown]
  - Secretion discharge [Unknown]
  - Drug effective for unapproved indication [Unknown]
  - Off label use [Unknown]
